FAERS Safety Report 9555613 (Version 1)
Quarter: 2013Q3

REPORT INFORMATION
  Report Type: Spontaneous
  Country: FR (occurrence: FR)
  Receive Date: 20130926
  Receipt Date: 20130926
  Transmission Date: 20140515
  Serious: Yes (Hospitalization)
  Sender: FDA-Public Use
  Company Number: PHHY2013FR105817

PATIENT
  Age: 74 Year
  Sex: Female
  Weight: 49 kg

DRUGS (7)
  1. AFINITOR [Suspect]
     Indication: BREAST CANCER
     Dosage: 1 DF, QD
     Route: 048
     Dates: start: 20130328, end: 20130617
  2. ALDACTAZINE [Suspect]
     Indication: OEDEMA PERIPHERAL
     Route: 048
     Dates: start: 20130604, end: 20130608
  3. AROMASIN [Suspect]
     Indication: BREAST CANCER
     Dosage: 1 DF, QD
     Route: 048
     Dates: start: 20130328, end: 20130617
  4. PARACETAMOL + CODEINE [Concomitant]
  5. FLECAINE [Concomitant]
  6. CLODRONATE DISODIUM [Concomitant]
     Indication: METASTASES TO BONE
     Dates: start: 2010
  7. LAMALINE [Concomitant]
     Dosage: 1 DF, QD
     Route: 048
     Dates: start: 20130604, end: 20130605

REACTIONS (5)
  - Toxic skin eruption [Recovered/Resolved]
  - Eosinophilia [Recovering/Resolving]
  - Hepatocellular injury [Recovering/Resolving]
  - Pruritus [Recovered/Resolved]
  - Oedema peripheral [Recovered/Resolved]
